FAERS Safety Report 4530539-X (Version None)
Quarter: 2004Q4

REPORT INFORMATION
  Report Type: 
  Country: None (occurrence: None)
  Receive Date: 20041216
  Receipt Date: 20041126
  Transmission Date: 20050328
  Serious: Yes (Hospitalization)
  Sender: FDA-Public Use
  Company Number: JP_041105281

PATIENT
  Age: 74 Year
  Sex: Male
  Weight: 52 kg

DRUGS (3)
  1. GEMZAR [Suspect]
     Indication: PANCREATIC CARCINOMA
     Dosage: 1300 MG OTHER
     Dates: start: 20030805, end: 20040720
  2. ALDACTONE [Concomitant]
  3. NAUZELIN (DOMPERIDONE) [Concomitant]

REACTIONS (7)
  - ANAEMIA [None]
  - ASCITES [None]
  - HAEMODIALYSIS [None]
  - MALAISE [None]
  - OEDEMA [None]
  - PLEURAL EFFUSION [None]
  - RENAL IMPAIRMENT [None]
